FAERS Safety Report 4566506-X (Version None)
Quarter: 2005Q1

REPORT INFORMATION
  Report Type: 
  Country: None (occurrence: None)
  Receive Date: 20050128
  Receipt Date: 20040602
  Transmission Date: 20050727
  Serious: Yes (Disabling, Other)
  Sender: FDA-Public Use
  Company Number: 2005S1000014

PATIENT
  Age: 48 Year
  Sex: Female
  Weight: 56.6996 kg

DRUGS (1)
  1. SORIATANE [Suspect]
     Dosage: QID; PO
     Route: 048
     Dates: start: 20040215, end: 20040219

REACTIONS (6)
  - ACTIVITIES OF DAILY LIVING IMPAIRED [None]
  - DERMATITIS EXFOLIATIVE [None]
  - ERYTHEMA [None]
  - MALAISE [None]
  - MEDICATION ERROR [None]
  - OEDEMA MUCOSAL [None]
